FAERS Safety Report 7725527-6 (Version None)
Quarter: 2011Q3

REPORT INFORMATION
  Report Type: 
  Country: None (occurrence: None)
  Receive Date: 20110902
  Receipt Date: 20110826
  Transmission Date: 20111222
  Serious: Yes (Hospitalization)
  Sender: FDA-Public Use
  Company Number: DE-JNJFOC-20110811937

PATIENT
  Sex: Female

DRUGS (1)
  1. IMODIUM AD [Suspect]
     Indication: DIARRHOEA
     Route: 048
     Dates: start: 20110801, end: 20110801

REACTIONS (2)
  - PAIN [None]
  - CONSTIPATION [None]
